FAERS Safety Report 4421809-4 (Version None)
Quarter: 2004Q3

REPORT INFORMATION
  Report Type: 
  Country: None (occurrence: None)
  Receive Date: 20040806
  Receipt Date: 20040719
  Transmission Date: 20050211
  Serious: Yes (Other)
  Sender: FDA-Public Use
  Company Number: USA031050149

PATIENT
  Age: 49 Year
  Sex: Female
  Weight: 124 kg

DRUGS (5)
  1. FORTEO [Suspect]
     Indication: OSTEOPOROSIS
     Dosage: 20 UG/1 DAY
     Dates: start: 20030831
  2. FLEXERIL [Concomitant]
  3. DARVOCET-N 100 [Concomitant]
  4. OXYCODONE HCL [Concomitant]
  5. TUMS (CALCIUM CARBONATE) [Concomitant]

REACTIONS (17)
  - ABASIA [None]
  - BURNING SENSATION [None]
  - DECREASED ACTIVITY [None]
  - DEVICE FAILURE [None]
  - DYSSTASIA [None]
  - FALL [None]
  - FATIGUE [None]
  - HEART RATE INCREASED [None]
  - HYPOAESTHESIA [None]
  - MIGRAINE [None]
  - MUSCLE CRAMP [None]
  - NODAL RHYTHM [None]
  - PHARMACEUTICAL PRODUCT COMPLAINT [None]
  - PNEUMONIA [None]
  - SPINAL FRACTURE [None]
  - VISION BLURRED [None]
  - VISUAL ACUITY REDUCED [None]
